FAERS Safety Report 6363144-3 (Version None)
Quarter: 2009Q3

REPORT INFORMATION
  Report Type: 
  Country: None (occurrence: None)
  Receive Date: 20090919
  Receipt Date: 20090622
  Transmission Date: 20100115
  Serious: No
  Sender: FDA-Public Use
  Company Number: US-ABBOTT-09P-163-0581236-00

PATIENT
  Sex: Male
  Weight: 66.738 kg

DRUGS (5)
  1. HUMIRA [Suspect]
     Indication: CROHN'S DISEASE
     Route: 058
     Dates: start: 20090522, end: 20090522
  2. HUMIRA [Suspect]
     Route: 058
     Dates: start: 20090605, end: 20090605
  3. HUMIRA [Suspect]
     Route: 058
     Dates: start: 20090619
  4. VITAMIN D [Concomitant]
     Indication: DRUG USE FOR UNKNOWN INDICATION
     Route: 048
  5. VITAMIN B-12 [Concomitant]
     Indication: DRUG USE FOR UNKNOWN INDICATION

REACTIONS (7)
  - ASTHENIA [None]
  - CHEST PAIN [None]
  - DECREASED APPETITE [None]
  - EYE PAIN [None]
  - MUSCLE SPASMS [None]
  - VISION BLURRED [None]
  - WEIGHT DECREASED [None]
